FAERS Safety Report 7594276-X (Version None)
Quarter: 2011Q3

REPORT INFORMATION
  Report Type: 
  Country: None (occurrence: None)
  Receive Date: 20110706
  Receipt Date: 20110627
  Transmission Date: 20111222
  Serious: Yes (Hospitalization, Other)
  Sender: FDA-Public Use
  Company Number: US-ASTRAZENECA-2011SE05265

PATIENT
  Sex: Male

DRUGS (2)
  1. NEXIUM [Suspect]
     Route: 048
  2. SEROQUEL [Suspect]
     Route: 048

REACTIONS (6)
  - SPINAL OPERATION [None]
  - DRUG DOSE OMISSION [None]
  - SPINAL FRACTURE [None]
  - ACCIDENT [None]
  - CHOLECYSTECTOMY [None]
  - HOSPITALISATION [None]
